FAERS Safety Report 9101527 (Version 1)
Quarter: 2013Q1

REPORT INFORMATION
  Report Type: Spontaneous
  Country: US (occurrence: None)
  Receive Date: 20130220
  Receipt Date: 20130220
  Transmission Date: 20140127
  Serious: Yes (Other)
  Sender: FDA-Public Use
  Company Number: None

PATIENT
  Age: 50 Year
  Sex: Female
  Weight: 91.17 kg

DRUGS (2)
  1. CYMBALTA 30 MG LILLY [Suspect]
     Route: 048
     Dates: start: 20120701, end: 20120707
  2. CYMBALTA [Suspect]
     Route: 048
     Dates: start: 20120707, end: 20121001

REACTIONS (6)
  - Depression [None]
  - Dissociative fugue [None]
  - Loss of consciousness [None]
  - Judgement impaired [None]
  - Blood pressure increased [None]
  - Impaired driving ability [None]
